FAERS Safety Report 10436475 (Version 1)
Quarter: 2014Q3

REPORT INFORMATION
  Report Type: Spontaneous
  Country: US (occurrence: US)
  Receive Date: 20140908
  Receipt Date: 20140908
  Transmission Date: 20150326
  Serious: No
  Sender: FDA-Public Use
  Company Number: US-BRISTOL-MYERS SQUIBB COMPANY-19479559

PATIENT
  Age: 62 Year
  Sex: Male

DRUGS (15)
  1. ASPIRIN. [Concomitant]
     Active Substance: ASPIRIN
  2. BISACODYL. [Concomitant]
     Active Substance: BISACODYL
  3. FINASTERIDE. [Concomitant]
     Active Substance: FINASTERIDE
  4. HYDRALAZINE [Concomitant]
     Active Substance: HYDRALAZINE HYDROCHLORIDE
  5. HEPARIN [Concomitant]
     Active Substance: HEPARIN SODIUM
  6. METOPROLOL [Concomitant]
     Active Substance: METOPROLOL
  7. NICOTINE. [Concomitant]
     Active Substance: NICOTINE
     Dosage: PATCH
  8. CLOTRIMAZOLE. [Concomitant]
     Active Substance: CLOTRIMAZOLE
  9. ABILIFY [Suspect]
     Active Substance: ARIPIPRAZOLE
     Indication: DELIRIUM
     Route: 042
     Dates: start: 20130919, end: 20130920
  10. MINERAL OIL. [Concomitant]
     Active Substance: MINERAL OIL
  11. INSULIN ASPART [Concomitant]
     Active Substance: INSULIN ASPART
  12. FLOMAX [Concomitant]
     Active Substance: TAMSULOSIN HYDROCHLORIDE
  13. MILK OF MAGNESIA [Concomitant]
     Active Substance: MAGNESIUM HYDROXIDE
  14. DOXYCYCLINE. [Concomitant]
     Active Substance: DOXYCYCLINE
  15. RISPERIDONE. [Concomitant]
     Active Substance: RISPERIDONE

REACTIONS (3)
  - Incorrect route of drug administration [Unknown]
  - Insomnia [Unknown]
  - Nausea [Recovered/Resolved]
